FAERS Safety Report 7938720-4 (Version None)
Quarter: 2011Q4

REPORT INFORMATION
  Report Type: 
  Country: None (occurrence: None)
  Receive Date: 20111124
  Receipt Date: 20111117
  Transmission Date: 20120403
  Serious: Yes (Other)
  Sender: FDA-Public Use
  Company Number: DE-BIOGENIDEC-2011BI043945

PATIENT
  Sex: Female

DRUGS (2)
  1. TYSABRI [Suspect]
     Indication: MULTIPLE SCLEROSIS
     Dates: end: 20110101
  2. FAMPYRA [Concomitant]
     Indication: GAIT DISTURBANCE

REACTIONS (2)
  - HEPATITIS TOXIC [None]
  - MULTIPLE SCLEROSIS RELAPSE [None]
